FAERS Safety Report 25045388 (Version 1)
Quarter: 2025Q1

REPORT INFORMATION
  Report Type: Spontaneous
  Country: US (occurrence: None)
  Receive Date: 20250305
  Receipt Date: 20250305
  Transmission Date: 20250409
  Serious: Yes (Hospitalization)
  Sender: FDA-CTU
  Company Number: None

PATIENT
  Age: 15 Year
  Sex: Male

DRUGS (1)
  1. DUPIXENT [Suspect]
     Active Substance: DUPILUMAB
     Indication: Eczema
     Route: 058
     Dates: start: 20240130, end: 20240130

REACTIONS (7)
  - Nausea [None]
  - Asthenia [None]
  - Vomiting [None]
  - Dyspnoea [None]
  - Tremor [None]
  - Seizure [None]
  - Post procedural complication [None]

NARRATIVE: CASE EVENT DATE: 20250101
